FAERS Safety Report 15083896 (Version 2)
Quarter: 2018Q3

REPORT INFORMATION
  Report Type: Spontaneous
  Country: FI (occurrence: FI)
  Receive Date: 20180628
  Receipt Date: 20180725
  Transmission Date: 20181010
  Serious: Yes (Hospitalization, Other)
  Sender: FDA-Public Use
  Company Number: FI-BRISTOL-MYERS SQUIBB COMPANY-BMS-2018-057919

PATIENT
  Age: 77 Year
  Sex: Male

DRUGS (9)
  1. NATRIUMBICARBONATE BRAUN [Concomitant]
     Indication: ACID BASE BALANCE
     Dosage: 1 G, QD
     Route: 048
     Dates: start: 20170223
  2. MIRTAZAPIN [Concomitant]
     Active Substance: MIRTAZAPINE
     Indication: DEPRESSION
     Dosage: 15 MG, QD
     Route: 048
     Dates: start: 20170405, end: 20180612
  3. CAPRILON                           /00101801/ [Concomitant]
     Indication: EPISTAXIS
     Dosage: 1 DF, UNK
     Route: 048
     Dates: start: 20160921
  4. PEGORION [Concomitant]
     Active Substance: POLYETHYLENE GLYCOL 4000
     Indication: CONSTIPATION
     Dosage: 12 G, QD
     Route: 048
     Dates: start: 20170223
  5. INSPIOLTO RESPIMAT [Concomitant]
     Active Substance: OLODATEROL HYDROCHLORIDE\TIOTROPIUM BROMIDE MONOHYDRATE
     Indication: CHRONIC OBSTRUCTIVE PULMONARY DISEASE
     Dosage: 2.5/2.5 MICROG 2 DOSES
     Route: 065
     Dates: start: 20180119
  6. PANADOL FORTE                      /00020001/ [Concomitant]
     Active Substance: ACETAMINOPHEN
     Indication: PAIN
     Dosage: 1 G, TID
     Route: 048
     Dates: start: 20180531
  7. IMOVANE [Concomitant]
     Active Substance: ZOPICLONE
     Indication: SLEEP DISORDER
     Dosage: UNK
     Route: 048
     Dates: start: 20170110
  8. ELIQUIS [Suspect]
     Active Substance: APIXABAN
     Indication: DEEP VEIN THROMBOSIS
     Dosage: 5 MG, BID
     Route: 065
     Dates: start: 20180531, end: 20180609
  9. MIRTAZAPIN [Concomitant]
     Active Substance: MIRTAZAPINE
     Indication: SLEEP DISORDER
     Dosage: UNK
     Route: 065
     Dates: start: 20180622

REACTIONS (10)
  - Pneumonia [Recovered/Resolved]
  - Hyperkalaemia [Unknown]
  - Infection [Unknown]
  - Anaemia [Unknown]
  - Thrombocytopenia [Recovered/Resolved]
  - Pancytopenia [Recovering/Resolving]
  - Myelodysplastic syndrome [Unknown]
  - Dyspnoea [Unknown]
  - Leukopenia [Recovered/Resolved]
  - Bone marrow disorder [Recovering/Resolving]

NARRATIVE: CASE EVENT DATE: 201806
